FAERS Safety Report 21521174 (Version 1)
Quarter: 2022Q4

REPORT INFORMATION
  Report Type: Spontaneous
  Country: US (occurrence: US)
  Receive Date: 20221028
  Receipt Date: 20221028
  Transmission Date: 20230113
  Serious: No
  Sender: FDA-Public Use
  Company Number: US-JNJFOC-20221038870

PATIENT
  Age: 56 Year
  Sex: Female

DRUGS (2)
  1. WOMENS ROGAINE UNSCENTED [Suspect]
     Active Substance: MINOXIDIL
     Indication: Alopecia
     Dosage: A QUARTER SIZE
     Route: 061
     Dates: start: 20220512
  2. WOMENS ROGAINE UNSCENTED [Suspect]
     Active Substance: MINOXIDIL
     Dosage: A QUARTER SIZE
     Route: 061

REACTIONS (4)
  - Alopecia [Recovered/Resolved]
  - Incorrect dose administered [Unknown]
  - Product packaging difficult to open [Unknown]
  - Product container issue [Unknown]

NARRATIVE: CASE EVENT DATE: 20220512
